FAERS Safety Report 6693464-4 (Version None)
Quarter: 2010Q2

REPORT INFORMATION
  Report Type: 
  Country: None (occurrence: None)
  Receive Date: 20100423
  Receipt Date: 20100415
  Transmission Date: 20101027
  Serious: Yes (Hospitalization, Other)
  Sender: FDA-Public Use
  Company Number: US-BIOGENIDEC-2010BI013061

PATIENT
  Sex: Female

DRUGS (4)
  1. AVONEX [Suspect]
     Indication: MULTIPLE SCLEROSIS
     Route: 030
     Dates: start: 20030303, end: 20070129
  2. AVONEX [Suspect]
     Route: 030
     Dates: start: 20070401
  3. PNEUMONIA SHOT [Concomitant]
  4. FLU SHOT [Concomitant]

REACTIONS (4)
  - CONVULSION [None]
  - CYSTITIS [None]
  - PYREXIA [None]
  - TACHYCARDIA [None]
